FAERS Safety Report 16099179 (Version 1)
Quarter: 2019Q1

REPORT INFORMATION
  Report Type: Spontaneous
  Country: GB (occurrence: GB)
  Receive Date: 20190321
  Receipt Date: 20190321
  Transmission Date: 20190418
  Serious: Yes (Hospitalization)
  Sender: FDA-Public Use
  Company Number: GB-ABBVIE-19P-167-2713002-00

PATIENT
  Age: 41 Year
  Sex: Female

DRUGS (1)
  1. PROSTAP SR [Suspect]
     Active Substance: LEUPROLIDE ACETATE
     Indication: ENDOMETRIOSIS
     Dosage: 11.25 MILLIGRAM, QD
     Route: 030
     Dates: start: 20190129

REACTIONS (2)
  - Administration site abscess [Recovering/Resolving]
  - Localised infection [Recovering/Resolving]
